FAERS Safety Report 8477176-2 (Version None)
Quarter: 2012Q2

REPORT INFORMATION
  Report Type: 
  Country: None (occurrence: None)
  Receive Date: 20120625
  Receipt Date: 20120625
  Transmission Date: 20120825
  Serious: Yes (Other)
  Sender: FDA-Public Use
  Company Number: None

PATIENT
  Age: 57 Year
  Sex: Female
  Weight: 53.5244 kg

DRUGS (1)
  1. ARTH ARREST [Suspect]
     Indication: ARTHRITIS
     Dosage: ROLL ON OINTMENT 3-4 TIMES DAILY TOP
     Route: 061
     Dates: start: 20120621, end: 20120621

REACTIONS (3)
  - SKIN BURNING SENSATION [None]
  - CHEMICAL BURN OF SKIN [None]
  - ACCIDENTAL EXPOSURE [None]
